FAERS Safety Report 23686366 (Version 1)
Quarter: 2024Q1

REPORT INFORMATION
  Report Type: Spontaneous
  Country: CN (occurrence: CN)
  Receive Date: 20240329
  Receipt Date: 20240329
  Transmission Date: 20240409
  Serious: Yes (Other)
  Sender: FDA-Public Use
  Company Number: CN-JNJFOC-20240330457

PATIENT

DRUGS (5)
  1. IMBRUVICA [Suspect]
     Active Substance: IBRUTINIB
     Indication: Product used for unknown indication
     Route: 048
  2. RITUXIMAB [Suspect]
     Active Substance: RITUXIMAB
     Indication: Product used for unknown indication
     Route: 065
  3. VENETOCLAX [Suspect]
     Active Substance: VENETOCLAX
     Indication: Product used for unknown indication
     Route: 065
  4. OBINUTUZUMAB [Suspect]
     Active Substance: OBINUTUZUMAB
     Indication: Product used for unknown indication
     Route: 065
  5. LENALIDOMIDE [Suspect]
     Active Substance: LENALIDOMIDE
     Indication: Product used for unknown indication
     Route: 065

REACTIONS (44)
  - Acute kidney injury [Unknown]
  - Hypotension [Unknown]
  - Infusion related reaction [Unknown]
  - Fall [Unknown]
  - Pain [Unknown]
  - Headache [Unknown]
  - Myelosuppression [Unknown]
  - Weight decreased [Unknown]
  - Arrhythmia [Unknown]
  - Haemorrhage [Unknown]
  - Rash [Unknown]
  - Respiratory failure [Unknown]
  - White blood cell count increased [Unknown]
  - Hyperkalaemia [Unknown]
  - Dizziness [Unknown]
  - Pleural effusion [Unknown]
  - Hypokalaemia [Unknown]
  - Chronic lymphocytic leukaemia [Unknown]
  - Abdominal pain upper [Unknown]
  - Fatigue [Unknown]
  - Muscle spasms [Unknown]
  - Contusion [Unknown]
  - Asthenia [Unknown]
  - Peripheral swelling [Unknown]
  - Dehydration [Unknown]
  - Diffuse large B-cell lymphoma [Unknown]
  - Neuropathy peripheral [Unknown]
  - Dyspnoea [Unknown]
  - Infection [Unknown]
  - Nausea [Unknown]
  - Myalgia [Unknown]
  - Cardiac arrest [Unknown]
  - Hypertension [Unknown]
  - Arthralgia [Unknown]
  - Lymphadenopathy [Unknown]
  - Diarrhoea [Unknown]
  - Syncope [Unknown]
  - Vomiting [Unknown]
  - Febrile neutropenia [Unknown]
  - Basal cell carcinoma [Unknown]
  - Atrial fibrillation [Unknown]
  - Pyrexia [Unknown]
  - Tumour lysis syndrome [Unknown]
  - Lymphocyte count decreased [Unknown]
